FAERS Safety Report 22315820 (Version 2)
Quarter: 2023Q2

REPORT INFORMATION
  Report Type: Report from Study
  Country: US (occurrence: US)
  Receive Date: 20230512
  Receipt Date: 20230515
  Transmission Date: 20230722
  Serious: No
  Sender: FDA-Public Use
  Company Number: US-002147023-NVSC2023US108751

PATIENT
  Sex: Female
  Weight: 77.1 kg

DRUGS (1)
  1. TREPROSTINIL [Suspect]
     Active Substance: TREPROSTINIL
     Indication: Pulmonary arterial hypertension
     Dosage: UNK, CONT (136 NG/KG/MIN)
     Route: 042
     Dates: start: 20190423

REACTIONS (1)
  - Seasonal allergy [Unknown]
